FAERS Safety Report 10231357 (Version 1)
Quarter: 2014Q2

REPORT INFORMATION
  Report Type: Spontaneous
  Country: CA (occurrence: CA)
  Receive Date: 20140611
  Receipt Date: 20140611
  Transmission Date: 20141212
  Serious: Yes (Other)
  Sender: FDA-Public Use
  Company Number: CA-ASTELLAS-2014US006611

PATIENT
  Sex: Male

DRUGS (1)
  1. XTANDI [Suspect]
     Indication: NEOPLASM MALIGNANT
     Dosage: UNK, UNKNOWN FREQ.
     Route: 048

REACTIONS (6)
  - Hepatomegaly [Unknown]
  - Restlessness [Unknown]
  - Dizziness [Unknown]
  - Asthenia [Unknown]
  - Decreased appetite [Unknown]
  - Vomiting [Unknown]
